FAERS Safety Report 10064145 (Version 1)
Quarter: 2014Q1

REPORT INFORMATION
  Report Type: Spontaneous
  Country: US (occurrence: None)
  Receive Date: 20140124
  Receipt Date: 20140124
  Transmission Date: 20141002
  Serious: Yes (Other)
  Sender: FDA-Public Use
  Company Number: 2010S1000388

PATIENT
  Age: 68 Year
  Sex: Male
  Weight: 210.5 kg

DRUGS (21)
  1. FLEET PHOSPHO-SODA ORAL SALINE LAXATIVE, GINGER-LEMON FLAVOR (ORAL SOLUTION) [Suspect]
     Indication: COLONOSCOPY
     Route: 048
  2. ANDROGEL [Concomitant]
  3. ASIPRIN [Concomitant]
  4. ATENOLOL [Concomitant]
  5. ATENOLOL [Concomitant]
  6. CALCIUM/MAGNESIUM/ZINC [Concomitant]
  7. FLAX SEED OIL [Concomitant]
  8. GROWTH HORMONE [Concomitant]
  9. KLOR CON [Concomitant]
  10. LANTUS [Concomitant]
  11. LEVOXYL [Concomitant]
  12. LIPITOR [Concomitant]
  13. LOTREL [Concomitant]
  14. MULTIVITAMIN [Concomitant]
  15. NEXIUM [Concomitant]
  16. NOVOLOG [Concomitant]
  17. OPTIVAR [Concomitant]
  18. SYMLIN [Concomitant]
  19. TRICOR [Concomitant]
  20. XALATAN [Concomitant]
  21. ZANTAC [Concomitant]

REACTIONS (4)
  - Renal failure chronic [None]
  - Acute phosphate nephropathy [None]
  - Renal cyst [None]
  - Pneumonia [None]
